FAERS Safety Report 10207061 (Version 1)
Quarter: 2014Q2

REPORT INFORMATION
  Report Type: Spontaneous
  Country: US (occurrence: None)
  Receive Date: 20140528
  Receipt Date: 20140528
  Transmission Date: 20141212
  Serious: Yes (Other)
  Sender: FDA-Public Use
  Company Number: None

PATIENT
  Age: 51 Year
  Sex: Female
  Weight: 86.18 kg

DRUGS (8)
  1. BUPROPION SR [Suspect]
     Indication: DEPRESSION
     Dosage: 1 TABLET
     Route: 048
     Dates: start: 20140501, end: 20140516
  2. FISH OIL [Concomitant]
  3. IBUPROFEN [Concomitant]
  4. IBUPROFEN [Concomitant]
  5. MELOXICAM [Concomitant]
  6. TRAVATAN Z [Concomitant]
  7. LEVOTHYROXINE [Concomitant]
  8. HYDROCODONE-APAP [Concomitant]

REACTIONS (4)
  - Depression [None]
  - Staring [None]
  - Product substitution issue [None]
  - Product quality issue [None]
